FAERS Safety Report 13516770 (Version 2)
Quarter: 2017Q3

REPORT INFORMATION
  Report Type: Report from Study
  Country: None (occurrence: US)
  Receive Date: 20170505
  Receipt Date: 20170822
  Transmission Date: 20171127
  Serious: Yes (Hospitalization, Other)
  Sender: FDA-Public Use
  Company Number: US-ABBVIE-17K-163-1960330-00

PATIENT
  Sex: Female
  Weight: 104.42 kg

DRUGS (5)
  1. HUMIRA [Suspect]
     Active Substance: ADALIMUMAB
     Indication: PSORIASIS
     Route: 058
     Dates: start: 2011
  2. GLUCOSAMINE + CHONDROITIN [Concomitant]
     Indication: SUPPLEMENTATION THERAPY
  3. VITAMIN D [Concomitant]
     Active Substance: CHOLECALCIFEROL
     Indication: VITAMIN SUPPLEMENTATION
  4. CALCIUM [Concomitant]
     Active Substance: CALCIUM
     Indication: MINERAL SUPPLEMENTATION
  5. VIT B 12 [Concomitant]
     Indication: VITAMIN SUPPLEMENTATION

REACTIONS (12)
  - Impaired healing [Unknown]
  - Blister [Not Recovered/Not Resolved]
  - Pruritus [Not Recovered/Not Resolved]
  - Tendonitis [Unknown]
  - Procedural pain [Recovering/Resolving]
  - Meniscus injury [Unknown]
  - Intervertebral disc protrusion [Unknown]
  - Pruritus [Recovered/Resolved]
  - Back pain [Not Recovered/Not Resolved]
  - Sciatica [Recovered/Resolved]
  - Blister [Recovered/Resolved]
  - Plantar fasciitis [Not Recovered/Not Resolved]

NARRATIVE: CASE EVENT DATE: 2014
